FAERS Safety Report 18024529 (Version 1)
Quarter: 2020Q3

REPORT INFORMATION
  Report Type: Spontaneous
  Country: US (occurrence: US)
  Receive Date: 20200714
  Receipt Date: 20200714
  Transmission Date: 20201103
  Serious: Yes (Life-Threatening)
  Sender: FDA-Public Use
  Company Number: None

PATIENT
  Age: 22 Year
  Sex: Male
  Weight: 98.1 kg

DRUGS (1)
  1. FERUMOXYTOL [Suspect]
     Active Substance: FERUMOXYTOL NON-STOICHIOMETRIC MAGNETITE
     Indication: IRON DEFICIENCY
     Dosage: ?          QUANTITY:100 ML;OTHER FREQUENCY:2 INFUSION COURSES;?
     Route: 042
     Dates: start: 20200713, end: 20200713

REACTIONS (5)
  - Pharyngeal swelling [None]
  - Oxygen saturation decreased [None]
  - Palpitations [None]
  - Flushing [None]
  - Dyspnoea [None]

NARRATIVE: CASE EVENT DATE: 20200713
